FAERS Safety Report 4396138-8 (Version None)
Quarter: 2004Q3

REPORT INFORMATION
  Report Type: 
  Country: None (occurrence: None)
  Receive Date: 20040708
  Receipt Date: 20040622
  Transmission Date: 20050211
  Serious: Yes (Hospitalization)
  Sender: FDA-Public Use
  Company Number: A0515668A

PATIENT
  Age: 26 Year
  Sex: Female
  Weight: 53.0709 kg

DRUGS (2)
  1. NICODERM CQ [Suspect]
     Indication: SMOKING CESSATION THERAPY
     Dosage: 14 MG/ SINGLE DOSE/ TRANSDERMAL
     Route: 062
     Dates: start: 20040608, end: 20040608
  2. CEPHALEXIN [Suspect]
     Indication: ARTHROPOD BITE
     Dosage: ORAL
     Route: 048
     Dates: start: 20040603

REACTIONS (9)
  - ASTHENIA [None]
  - BLOOD PRESSURE INCREASED [None]
  - CONVULSION [None]
  - DISTURBANCE IN ATTENTION [None]
  - EYE DISORDER [None]
  - FALL [None]
  - HEART RATE INCREASED [None]
  - PARAESTHESIA [None]
  - VISION BLURRED [None]
